FAERS Safety Report 18603471 (Version 3)
Quarter: 2021Q1

REPORT INFORMATION
  Report Type: Spontaneous
  Country: US (occurrence: US)
  Receive Date: 20201210
  Receipt Date: 20210213
  Transmission Date: 20210419
  Serious: Yes (Hospitalization, Other)
  Sender: FDA-Public Use
  Company Number: US-SA-2020SA354640

PATIENT
  Age: 54 Year
  Sex: Female

DRUGS (1)
  1. DUPIXENT [Suspect]
     Active Substance: DUPILUMAB
     Dosage: 400 MG, OTHER
     Route: 058
     Dates: start: 202008

REACTIONS (2)
  - Kidney infection [Unknown]
  - Adverse event [Unknown]

NARRATIVE: CASE EVENT DATE: 20201127
